FAERS Safety Report 5465336-4 (Version None)
Quarter: 2007Q3

REPORT INFORMATION
  Report Type: 
  Country: None (occurrence: None)
  Receive Date: 20070920
  Receipt Date: 20070920
  Transmission Date: 20080115
  Serious: Yes (Hospitalization)
  Sender: FDA-Public Use
  Company Number: None

PATIENT
  Sex: Female
  Weight: 91 kg

DRUGS (8)
  1. TEMOZOLOMIDE [Suspect]
     Dosage: 4185 MG
  2. AMLODIPINE [Concomitant]
  3. CARBAMAZEPINE [Concomitant]
  4. ENOXAPARIN SODIUM [Concomitant]
  5. LEVOTHYROXINE SODIUM [Concomitant]
  6. DEXAMETHASONE 0.5MG TAB [Concomitant]
  7. OMEPRAZOLE [Concomitant]
  8. OXAZAPAM [Concomitant]

REACTIONS (14)
  - ANXIETY [None]
  - ASTHENIA [None]
  - BALANCE DISORDER [None]
  - DEPRESSED LEVEL OF CONSCIOUSNESS [None]
  - DIZZINESS [None]
  - DRUG HYPERSENSITIVITY [None]
  - ENCEPHALITIS VIRAL [None]
  - FATIGUE [None]
  - HEADACHE [None]
  - MALAISE [None]
  - OXYGEN SATURATION DECREASED [None]
  - PULMONARY EMBOLISM [None]
  - PYREXIA [None]
  - TACHYPNOEA [None]
